FAERS Safety Report 6829650-X (Version None)
Quarter: 2010Q3

REPORT INFORMATION
  Report Type: 
  Country: None (occurrence: None)
  Receive Date: 20100709
  Receipt Date: 20070424
  Transmission Date: 20110219
  Serious: Yes (Other)
  Sender: FDA-Public Use
  Company Number: US-PFIZER INC-2007017410

PATIENT
  Sex: Female
  Weight: 77.1 kg

DRUGS (6)
  1. CHANTIX [Suspect]
     Indication: EX-TOBACCO USER
     Dosage: CHANTIX STARTER AND CONTINUATION PACK,DAILY
     Route: 048
     Dates: start: 20070118
  2. ZOLOFT [Suspect]
     Indication: DEPRESSION
  3. OXYCONTIN [Concomitant]
  4. ESTRACE [Concomitant]
  5. NEXIUM [Concomitant]
  6. ATIVAN [Concomitant]

REACTIONS (2)
  - DEPRESSION [None]
  - SUICIDAL IDEATION [None]
